FAERS Safety Report 6197130-3 (Version None)
Quarter: 2009Q2

REPORT INFORMATION
  Report Type: 
  Country: None (occurrence: None)
  Receive Date: 20090518
  Receipt Date: 20090518
  Transmission Date: 20091009
  Serious: Yes (Death)
  Sender: FDA-Public Use
  Company Number: None

PATIENT
  Sex: Female
  Weight: 58.9676 kg

DRUGS (1)
  1. ACETAMINOPHEN [Suspect]
     Indication: ARTHRALGIA
     Dosage: AS NEEDED-
     Dates: start: 20090101, end: 20090415

REACTIONS (8)
  - ABDOMINAL PAIN LOWER [None]
  - BLOOD PRESSURE DECREASED [None]
  - DEPRESSED LEVEL OF CONSCIOUSNESS [None]
  - HAEMORRHAGE [None]
  - HEART RATE DECREASED [None]
  - HYPERTENSION [None]
  - HYPOPHAGIA [None]
  - INTESTINAL HAEMORRHAGE [None]
